FAERS Safety Report 19029910 (Version 3)
Quarter: 2021Q2

REPORT INFORMATION
  Report Type: Report from Study
  Country: None (occurrence: CO)
  Receive Date: 20210319
  Receipt Date: 20210429
  Transmission Date: 20210717
  Serious: Yes (Hospitalization, Disabling, Other)
  Sender: FDA-Public Use
  Company Number: CO-ABBVIE-21K-036-3822649-00

PATIENT
  Age: 31 Year
  Sex: Female

DRUGS (2)
  1. ZEMPLAR [Suspect]
     Active Substance: PARICALCITOL
     Indication: CHRONIC KIDNEY DISEASE
  2. ZEMPLAR [Suspect]
     Active Substance: PARICALCITOL
     Indication: HYPERPARATHYROIDISM SECONDARY
     Route: 048
     Dates: start: 20161128

REACTIONS (5)
  - Cardiac disorder [Recovering/Resolving]
  - Musculoskeletal disorder [Recovering/Resolving]
  - Illness [Not Recovered/Not Resolved]
  - Thyroid disorder [Recovering/Resolving]
  - Pain in extremity [Not Recovered/Not Resolved]

NARRATIVE: CASE EVENT DATE: 2021
